FAERS Safety Report 15243289 (Version 1)
Quarter: 2018Q3

REPORT INFORMATION
  Report Type: Spontaneous
  Country: US (occurrence: US)
  Receive Date: 20180806
  Receipt Date: 20180806
  Transmission Date: 20181010
  Serious: No
  Sender: FDA-Public Use
  Company Number: US-JNJFOC-20180724615

PATIENT
  Sex: Female
  Weight: 54.43 kg

DRUGS (5)
  1. NUCYNTA [Concomitant]
     Active Substance: TAPENTADOL HYDROCHLORIDE
     Indication: PAIN
     Route: 048
  2. TOPAMAX [Suspect]
     Active Substance: TOPIRAMATE
     Indication: PAIN MANAGEMENT
     Dosage: 2010 OR 2011
     Route: 048
  3. TOPAMAX [Suspect]
     Active Substance: TOPIRAMATE
     Indication: PAIN MANAGEMENT
     Dosage: 2007 OR 2008
     Route: 048
  4. BUTRANS [Concomitant]
     Active Substance: BUPRENORPHINE
     Indication: PAIN
     Route: 062
  5. ULTRAM [Suspect]
     Active Substance: TRAMADOL HYDROCHLORIDE
     Indication: PAIN MANAGEMENT
     Route: 048

REACTIONS (6)
  - Product use in unapproved indication [Unknown]
  - Musculoskeletal disorder [Not Recovered/Not Resolved]
  - Epicondylitis [Not Recovered/Not Resolved]
  - Off label use [Unknown]
  - Carpal tunnel syndrome [Not Recovered/Not Resolved]
  - Limb injury [Not Recovered/Not Resolved]
